FAERS Safety Report 25641957 (Version 1)
Quarter: 2025Q3

REPORT INFORMATION
  Report Type: Spontaneous
  Country: CL (occurrence: CL)
  Receive Date: 20250804
  Receipt Date: 20250804
  Transmission Date: 20251021
  Serious: Yes (Death, Life-Threatening, Hospitalization, Other)
  Sender: Norvium Bioscience
  Company Number: CL-Norvium Bioscience LLC-080477

PATIENT
  Sex: Male

DRUGS (3)
  1. LEVOFLOXACIN [Suspect]
     Active Substance: LEVOFLOXACIN
     Indication: Pulmonary tuberculosis
  2. MEROPENEM [Suspect]
     Active Substance: MEROPENEM
     Indication: Pulmonary tuberculosis
  3. LINEZOLID [Suspect]
     Active Substance: LINEZOLID
     Indication: Pulmonary tuberculosis

REACTIONS (1)
  - Respiratory failure [Fatal]
